FAERS Safety Report 7421526-2 (Version None)
Quarter: 2011Q2

REPORT INFORMATION
  Report Type: 
  Country: None (occurrence: None)
  Receive Date: 20110418
  Receipt Date: 20110404
  Transmission Date: 20111010
  Serious: Yes (Death)
  Sender: FDA-Public Use
  Company Number: US-CELGENEUS-163-21880-11032215

PATIENT
  Sex: Female

DRUGS (1)
  1. REVLIMID [Suspect]
     Indication: MYELODYSPLASTIC SYNDROME
     Dosage: 5 MILLIGRAM
     Route: 048
     Dates: start: 20110126, end: 20110214

REACTIONS (4)
  - MYELODYSPLASTIC SYNDROME [None]
  - CORONARY ARTERY DISEASE [None]
  - AORTIC STENOSIS [None]
  - CHRONIC OBSTRUCTIVE PULMONARY DISEASE [None]
